FAERS Safety Report 16521924 (Version 1)
Quarter: 2019Q3

REPORT INFORMATION
  Report Type: Spontaneous
  Country: US (occurrence: US)
  Receive Date: 20190703
  Receipt Date: 20190703
  Transmission Date: 20191004
  Serious: Yes (Other)
  Sender: FDA-Public Use
  Company Number: US-COLGATE PALMOLIVE COMPANY-20190601726

PATIENT
  Sex: Female

DRUGS (1)
  1. COLGATE MAXFRESH WITH WHITENING KNOCKOUT FLUORIDE [Suspect]
     Active Substance: SODIUM FLUORIDE
     Dosage: UNKNOWN DOSE

REACTIONS (11)
  - Feeling hot [Unknown]
  - Stomatitis [Unknown]
  - Gingival discomfort [Unknown]
  - Glossitis [Unknown]
  - Cheilitis [Unknown]
  - Mouth swelling [Unknown]
  - Oral mucosal exfoliation [Unknown]
  - Tongue discomfort [Unknown]
  - Gingival disorder [Unknown]
  - Oral discomfort [Unknown]
  - Glossodynia [Unknown]
